FAERS Safety Report 5422623-3 (Version None)
Quarter: 2007Q3

REPORT INFORMATION
  Report Type: 
  Country: None (occurrence: None)
  Receive Date: 20070820
  Receipt Date: 20070802
  Transmission Date: 20080115
  Serious: Yes (Death)
  Sender: FDA-Public Use
  Company Number: 8025851

PATIENT
  Age: 38 Year
  Sex: Female

DRUGS (2)
  1. LORTAB [Suspect]
     Indication: POSTOPERATIVE ANALGESIA
     Dosage: 7.5 MG PO
     Route: 048
  2. PROPOXYPHENE NAPSYLATE [Concomitant]

REACTIONS (5)
  - DRUG INTOLERANCE [None]
  - HEPATIC ENCEPHALOPATHY [None]
  - HEPATIC NECROSIS [None]
  - OVERDOSE [None]
  - RENAL FAILURE [None]
